FAERS Safety Report 7507458-X (Version None)
Quarter: 2011Q2

REPORT INFORMATION
  Report Type: 
  Country: None (occurrence: None)
  Receive Date: 20110526
  Receipt Date: 20110524
  Transmission Date: 20111010
  Serious: Yes (Other)
  Sender: FDA-Public Use
  Company Number: US-MERCK-1105USA03610

PATIENT
  Age: 61 Year
  Sex: Female
  Weight: 83 kg

DRUGS (9)
  1. TOPROL-XL [Concomitant]
     Route: 065
  2. PLAVIX [Concomitant]
     Route: 065
  3. HYDROCHLOROT [Concomitant]
     Route: 065
  4. KLOR-CON [Concomitant]
     Route: 065
  5. LEVOXYL [Concomitant]
     Route: 065
  6. INVANZ [Suspect]
     Indication: PNEUMONIA
     Route: 041
  7. INVANZ [Suspect]
     Indication: EMPYEMA
     Route: 041
  8. MICARDIS [Concomitant]
     Route: 065
  9. SIMVASTATIN [Concomitant]
     Route: 065

REACTIONS (1)
  - ALOPECIA [None]
